FAERS Safety Report 22902112 (Version 6)
Quarter: 2024Q1

REPORT INFORMATION
  Report Type: Spontaneous
  Country: US (occurrence: US)
  Receive Date: 20230904
  Receipt Date: 20240320
  Transmission Date: 20240410
  Serious: Yes (Other)
  Sender: FDA-Public Use
  Company Number: US-BRISTOL-MYERS SQUIBB COMPANY-2023-124379

PATIENT
  Age: 66 Year
  Sex: Male

DRUGS (2)
  1. LENALIDOMIDE [Suspect]
     Active Substance: LENALIDOMIDE
     Indication: Plasma cell myeloma
     Dosage: FREQUENCY: TAKE 1 CAPSULE (15 MG) BY MOUTH EVERY DAY ON DAYS 1-21 OF A 28 DAY CYCLE
     Route: 048
     Dates: start: 20230706, end: 202311
  2. LENALIDOMIDE [Suspect]
     Active Substance: LENALIDOMIDE

REACTIONS (4)
  - Chronic obstructive pulmonary disease [Unknown]
  - Rosacea [Recovering/Resolving]
  - Dyspnoea [Not Recovered/Not Resolved]
  - Lung disorder [Recovered/Resolved]
